FAERS Safety Report 5281572-4 (Version None)
Quarter: 2007Q1

REPORT INFORMATION
  Report Type: 
  Country: None (occurrence: None)
  Receive Date: 20070330
  Receipt Date: 20070327
  Transmission Date: 20070707
  Serious: Yes (Hospitalization)
  Sender: FDA-Public Use
  Company Number: FR-BRISTOL-MYERS SQUIBB COMPANY-13730098

PATIENT
  Age: 41 Year
  Sex: Female
  Weight: 66 kg

DRUGS (3)
  1. TAXOL [Suspect]
     Indication: BREAST CANCER
     Route: 042
     Dates: start: 20061020
  2. GEMZAR [Suspect]
     Indication: BREAST CANCER
     Route: 042
     Dates: start: 20061020
  3. AVASTIN [Suspect]
     Indication: BREAST CANCER
     Route: 042
     Dates: start: 20061020

REACTIONS (1)
  - INTESTINAL ULCER [None]
